FAERS Safety Report 24784944 (Version 3)
Quarter: 2025Q4

REPORT INFORMATION
  Report Type: Spontaneous
  Country: US (occurrence: US)
  Receive Date: 20241228
  Receipt Date: 20251021
  Transmission Date: 20260117
  Serious: No
  Sender: LUPIN
  Company Number: US-LUPIN PHARMACEUTICALS INC.-2024-12417

PATIENT
  Age: 16 Year

DRUGS (1)
  1. LEVALBUTEROL TARTRATE [Suspect]
     Active Substance: LEVALBUTEROL TARTRATE
     Indication: Asthma
     Dosage: UNK, QID, 2 PUFFS EVERY 6 HOURS

REACTIONS (3)
  - Device defective [Unknown]
  - Drug dose omission by device [Unknown]
  - No adverse event [Unknown]
